FAERS Safety Report 20947136 (Version 2)
Quarter: 2022Q2

REPORT INFORMATION
  Report Type: Spontaneous
  Country: FR (occurrence: FR)
  Receive Date: 20220610
  Receipt Date: 20220630
  Transmission Date: 20220721
  Serious: Yes (Hospitalization)
  Sender: FDA-Public Use
  Company Number: FR-TEVA-2022-FR-2043475

PATIENT
  Age: 60 Year
  Sex: Male

DRUGS (5)
  1. ACETAMINOPHEN [Suspect]
     Active Substance: ACETAMINOPHEN
     Indication: Sciatica
     Dosage: 4 GRAM DAILY;
     Route: 048
  2. IBUPROFEN [Suspect]
     Active Substance: IBUPROFEN
     Indication: Sciatica
     Dosage: 1800 MILLIGRAM DAILY;
     Route: 048
  3. CORTISONE [Suspect]
     Active Substance: CORTISONE
     Indication: Sciatica
     Route: 050
  4. OXYCODONE [Suspect]
     Active Substance: OXYCODONE
     Indication: Sciatica
     Dosage: 30 MILLIGRAM DAILY;
     Route: 048
  5. SOLU-MEDROL [Suspect]
     Active Substance: METHYLPREDNISOLONE SODIUM SUCCINATE
     Indication: Sciatica
     Route: 030

REACTIONS (5)
  - Septic arthritis staphylococcal [Recovered/Resolved]
  - Weight decreased [Unknown]
  - Motor dysfunction [Not Recovered/Not Resolved]
  - Fatigue [Unknown]
  - Drug ineffective [Unknown]
